FAERS Safety Report 20456424 (Version 1)
Quarter: 2022Q1

REPORT INFORMATION
  Report Type: Report from Study
  Country: US (occurrence: US)
  Receive Date: 20220210
  Receipt Date: 20220210
  Transmission Date: 20220423
  Serious: Yes (Other)
  Sender: FDA-Public Use
  Company Number: US-MYLANLABS-2021M1049123

PATIENT
  Sex: Female
  Weight: 97 kg

DRUGS (1)
  1. GLATIRAMER ACETATE [Suspect]
     Active Substance: GLATIRAMER ACETATE
     Indication: Multiple sclerosis
     Dosage: 40 MILLIGRAM, Q3W

REACTIONS (3)
  - Multiple sclerosis relapse [Unknown]
  - Diplopia [Unknown]
  - Peroneal nerve palsy [Unknown]
